FAERS Safety Report 15056481 (Version 1)
Quarter: 2018Q2

REPORT INFORMATION
  Report Type: Spontaneous
  Country: GB (occurrence: GB)
  Receive Date: 20180623
  Receipt Date: 20180623
  Transmission Date: 20180711
  Serious: Yes (Hospitalization)
  Sender: FDA-Public Use
  Company Number: GB-ACCORD-068563

PATIENT
  Age: 11 Year
  Sex: Male
  Weight: 48 kg

DRUGS (3)
  1. ZOLEDRONIC ACID [Suspect]
     Active Substance: ZOLEDRONIC ACID
     Indication: SPINAL FRACTURE
     Route: 042
     Dates: start: 20171201, end: 20171201
  2. DEFLAZACORT [Concomitant]
     Active Substance: DEFLAZACORT
  3. COLECALCIFEROL [Concomitant]
     Active Substance: CHOLECALCIFEROL

REACTIONS (8)
  - Blood urine present [Unknown]
  - Rhabdomyolysis [Recovering/Resolving]
  - Muscle spasms [Unknown]
  - Chromaturia [Unknown]
  - Malaise [Unknown]
  - Systemic inflammatory response syndrome [Recovered/Resolved]
  - Tachypnoea [Unknown]
  - Tachycardia [Unknown]

NARRATIVE: CASE EVENT DATE: 20171202
